FAERS Safety Report 24284802 (Version 2)
Quarter: 2024Q3

REPORT INFORMATION
  Report Type: Spontaneous
  Country: FR (occurrence: FR)
  Receive Date: 20240905
  Receipt Date: 20240920
  Transmission Date: 20241017
  Serious: Yes (Other)
  Sender: CSL BEHRING
  Company Number: FR-AFSSAPS-PV2024000767

PATIENT
  Age: 34 Year
  Sex: Female
  Weight: 82 kg

DRUGS (9)
  1. PRIVIGEN [Suspect]
     Active Substance: HUMAN IMMUNOGLOBULIN G
     Indication: Placental disorder
     Dosage: 1 G/KG, TOT
     Route: 042
     Dates: start: 20240715, end: 20240715
  2. PRIVIGEN [Suspect]
     Active Substance: HUMAN IMMUNOGLOBULIN G
     Dosage: 1 G/KG, TOT
     Route: 042
     Dates: start: 20240819, end: 20240819
  3. PRIVIGEN [Suspect]
     Active Substance: HUMAN IMMUNOGLOBULIN G
     Dosage: 1 G/KG, TOT
     Route: 042
     Dates: start: 20240826, end: 20240826
  4. PRIVIGEN [Suspect]
     Active Substance: HUMAN IMMUNOGLOBULIN G
     Dosage: 1 G/KG, TOT
     Route: 042
     Dates: start: 20240902, end: 20240902
  5. CLAIRYG [Suspect]
     Active Substance: HUMAN IMMUNOGLOBULIN G
     Indication: Placental disorder
     Dosage: 1 G  (G/KG)
     Route: 042
     Dates: start: 20240729, end: 20240729
  6. CLAIRYG [Suspect]
     Active Substance: HUMAN IMMUNOGLOBULIN G
     Dosage: 1 G  (G/KG)
     Route: 042
     Dates: start: 20240722, end: 20240722
  7. CLAIRYG [Suspect]
     Active Substance: HUMAN IMMUNOGLOBULIN G
     Dosage: 1 G  (G/KG)
     Route: 042
     Dates: start: 20240729, end: 20240729
  8. CLAIRYG [Suspect]
     Active Substance: HUMAN IMMUNOGLOBULIN G
     Dosage: 1 G  (G/KG)
     Route: 042
     Dates: start: 20240627, end: 20240627
  9. CLAIRYG [Suspect]
     Active Substance: HUMAN IMMUNOGLOBULIN G
     Dosage: 1G/KG
     Route: 042
     Dates: start: 20240704, end: 20240704

REACTIONS (4)
  - Coombs test positive [Not Recovered/Not Resolved]
  - Anaemia [Not Recovered/Not Resolved]
  - Maternal exposure during pregnancy [Not Recovered/Not Resolved]
  - Off label use [Unknown]

NARRATIVE: CASE EVENT DATE: 20240101
